FAERS Safety Report 18435586 (Version 1)
Quarter: 2020Q4

REPORT INFORMATION
  Report Type: Spontaneous
  Country: US (occurrence: US)
  Receive Date: 20201028
  Receipt Date: 20201028
  Transmission Date: 20210114
  Serious: No
  Sender: FDA-Public Use
  Company Number: US-ADVANZ PHARMA-202004004792

PATIENT

DRUGS (3)
  1. SOTALOL. [Concomitant]
     Active Substance: SOTALOL
     Dosage: UNK
  2. DIGOXIN. [Suspect]
     Active Substance: DIGOXIN
     Indication: ATRIAL FIBRILLATION
     Dosage: FOR 7 YEARS
  3. DILTIAZEM. [Concomitant]
     Active Substance: DILTIAZEM
     Dosage: PILL IN POCKET

REACTIONS (4)
  - Peripheral sensory neuropathy [Unknown]
  - Condition aggravated [Unknown]
  - Hypoaesthesia [Unknown]
  - Blood calcium increased [Unknown]
